FAERS Safety Report 8884890 (Version 2)
Quarter: 2013Q1

REPORT INFORMATION
  Report Type: Spontaneous
  Country: US (occurrence: US)
  Receive Date: 20121105
  Receipt Date: 20130119
  Transmission Date: 20140127
  Serious: No
  Sender: FDA-Public Use
  Company Number: US-009507513-1210USA008001

PATIENT
  Age: 80 Year
  Sex: Female

DRUGS (3)
  1. ASMANEX TWISTHALER [Suspect]
     Dosage: 1 PUFF DAILY IN THE EVENING
     Route: 055
     Dates: start: 20120821
  2. ALBUTEROL [Concomitant]
  3. SINGULAIR [Concomitant]

REACTIONS (3)
  - Drug dose omission [Unknown]
  - Product quality issue [Unknown]
  - No adverse event [Unknown]
